FAERS Safety Report 11992829 (Version 1)
Quarter: 2016Q1

REPORT INFORMATION
  Report Type: Spontaneous
  Country: US (occurrence: US)
  Receive Date: 20160203
  Receipt Date: 20160203
  Transmission Date: 20160526
  Serious: No
  Sender: FDA-Public Use
  Company Number: US-UCBSA-2015016633

PATIENT
  Sex: Female
  Weight: 64 kg

DRUGS (5)
  1. BYSTOLIC [Concomitant]
     Active Substance: NEBIVOLOL HYDROCHLORIDE
     Indication: BLOOD PRESSURE INCREASED
     Dosage: 2.5 MG, ONCE DAILY (QD) EVERY MORNING
     Dates: start: 1980
  2. KEPPRA [Suspect]
     Active Substance: LEVETIRACETAM
     Dosage: (BRAND) DOSE TITRATED 3000 MG PER DAY
  3. KEPPRA [Suspect]
     Active Substance: LEVETIRACETAM
     Dosage: (BRAND) 250 MG ONCE IN MORNING AND 500 MG AT NIGHT
     Route: 048
     Dates: start: 20150502, end: 2015
  4. VIMPAT [Concomitant]
     Active Substance: LACOSAMIDE
     Indication: SEIZURE
     Dosage: 50 MG, 2X/DAY (BID)
     Dates: start: 20150617
  5. KEPPRA [Suspect]
     Active Substance: LEVETIRACETAM
     Indication: SEIZURE
     Dosage: UNK
     Route: 048
     Dates: start: 2008, end: 201501

REACTIONS (8)
  - Rash [Recovering/Resolving]
  - Flushing [Recovering/Resolving]
  - Dysphonia [Not Recovered/Not Resolved]
  - Somnolence [Recovered/Resolved]
  - Malaise [Not Recovered/Not Resolved]
  - Depressed mood [Unknown]
  - Irritability [Recovering/Resolving]
  - Insomnia [Recovering/Resolving]

NARRATIVE: CASE EVENT DATE: 2008
